FAERS Safety Report 24162056 (Version 1)
Quarter: 2024Q3

REPORT INFORMATION
  Report Type: Spontaneous
  Country: TW (occurrence: TW)
  Receive Date: 20240801
  Receipt Date: 20240801
  Transmission Date: 20241016
  Serious: Yes (Hospitalization)
  Sender: MYLAN
  Company Number: TW-MYLANLABS-2024M1071604

PATIENT
  Age: 57 Year
  Sex: Female

DRUGS (3)
  1. GEMCITABINE [Suspect]
     Active Substance: GEMCITABINE
     Indication: Cholangiocarcinoma
     Dosage: 1000 MILLIGRAM/SQ. METER, CYCLE, CYCLE?1
     Route: 065
     Dates: start: 20220804
  2. GEMCITABINE [Suspect]
     Active Substance: GEMCITABINE
     Dosage: 1000 MILLIGRAM/SQ. METER, CYCLE, CYCLE?2
     Route: 065
     Dates: start: 20220810
  3. GEMCITABINE [Suspect]
     Active Substance: GEMCITABINE
     Dosage: 500 MILLIGRAM/SQ. METER (AFTER 3-5 CYCLES OF GEMCITABINE, THE DOSE WAS REDUCED)
     Route: 065

REACTIONS (2)
  - Hyperammonaemia [Unknown]
  - Respiratory distress [Unknown]
